FAERS Safety Report 8385636 (Version 3)
Quarter: 2012Q4

REPORT INFORMATION
  Report Type: 
  Country: US (occurrence: US)
  Receive Date: 20120202
  Receipt Date: 20121023
  Transmission Date: 20130627
  Serious: Yes (Hospitalization, Congenital Anomaly, Other)
  Sender: FDA-Public Use
  Company Number: US-PFIZER INC-2012024654

PATIENT
  Sex: Female
  Weight: 2.63 kg

DRUGS (17)
  1. ZOLOFT [Suspect]
     Indication: DEPRESSION
     Dosage: UNK
     Route: 064
     Dates: start: 19991019
  2. ZOLOFT [Suspect]
     Indication: CRYING
     Dosage: 50 mg, UNK
     Route: 064
     Dates: start: 20030208
  3. ZOLOFT [Suspect]
     Indication: PREMENSTRUAL SYNDROME
     Dosage: 25 mg, UNK
     Route: 064
     Dates: start: 20030922
  4. ZOLOFT [Suspect]
     Dosage: 100mg daily
     Route: 064
     Dates: start: 20071016
  5. SERTRALINE HCL [Suspect]
     Dosage: UNK
     Route: 064
  6. PRENATAL VITAMINS [Concomitant]
     Dosage: UNK
     Route: 064
  7. IRON [Concomitant]
     Dosage: UNK
     Route: 064
  8. LOVENOX [Concomitant]
     Indication: ANTIPHOSPHOLIPID ANTIBODIES POSITIVE
     Dosage: 40 mg, 1x/day
     Route: 064
     Dates: start: 20070820
  9. ACETYLSALICYLIC ACID [Concomitant]
     Indication: ANTIPHOSPHOLIPID ANTIBODIES POSITIVE
     Dosage: UNK
     Route: 064
     Dates: start: 20070820
  10. TYLENOL [Concomitant]
     Indication: BACK PAIN
     Dosage: 2 tabs
     Route: 064
     Dates: start: 20070910
  11. METOPROLOL [Concomitant]
     Dosage: UNK
     Route: 064
  12. PERCOCET [Concomitant]
     Indication: PAIN
     Dosage: 5/325 mg, UNK 1 to 2 tabs every 4 hours
     Route: 064
     Dates: start: 20071206
  13. PERCOCET [Concomitant]
     Indication: PELVIC PAIN
  14. PERCOCET [Concomitant]
     Indication: PAIN IN EXTREMITY
  15. DARVOCET-N [Concomitant]
     Indication: PELVIC PAIN
     Dosage: UNK
     Route: 064
     Dates: start: 20071213
  16. HEPARIN [Concomitant]
     Indication: ANTIPHOSPHOLIPID ANTIBODIES POSITIVE
     Dosage: 10000 IU, 2x/day
     Route: 064
  17. TOPROL XL [Concomitant]
     Dosage: 25 mg, UNK
     Route: 064

REACTIONS (17)
  - Maternal exposure timing unspecified [Unknown]
  - Congenital ectopic bladder [Recovered/Resolved]
  - Atrial septal defect repair [Recovered/Resolved]
  - Ventricular septal defect repair [Recovered/Resolved]
  - Heart disease congenital [Recovered/Resolved]
  - Patent ductus arteriosus [Unknown]
  - Renal aplasia [Unknown]
  - Hydronephrosis [Unknown]
  - Exomphalos [Recovered/Resolved]
  - Genitalia external ambiguous [Unknown]
  - Anterior displaced anus [Unknown]
  - Congenital ureteric anomaly [Unknown]
  - Talipes [Unknown]
  - Hydrometra [Unknown]
  - Kidney malrotation [Unknown]
  - Congenital anomaly [Unknown]
  - Urinary tract infection [Unknown]
